FAERS Safety Report 20954901 (Version 1)
Quarter: 2022Q2

REPORT INFORMATION
  Report Type: Report from Study
  Country: US (occurrence: None)
  Receive Date: 20220614
  Receipt Date: 20220614
  Transmission Date: 20220720
  Serious: No
  Sender: FDA-Public Use
  Company Number: US-MDD US Operations-MDD202104-000781

PATIENT
  Age: 74 Year
  Sex: Male
  Weight: 78.4 kg

DRUGS (3)
  1. APOKYN [Suspect]
     Active Substance: APOMORPHINE HYDROCHLORIDE
     Indication: Parkinson^s disease
     Route: 058
  2. APOKYN [Suspect]
     Active Substance: APOMORPHINE HYDROCHLORIDE
     Indication: Saliva altered
  3. NORITATE [Concomitant]
     Active Substance: METRONIDAZOLE

REACTIONS (3)
  - Skin hypertrophy [Unknown]
  - Injection site pain [Unknown]
  - Product use in unapproved indication [Unknown]
